FAERS Safety Report 19083777 (Version 8)
Quarter: 2022Q4

REPORT INFORMATION
  Report Type: Report from Study
  Country: CA (occurrence: CA)
  Receive Date: 20210401
  Receipt Date: 20221227
  Transmission Date: 20230113
  Serious: Yes (Other)
  Sender: FDA-Public Use
  Company Number: CA-ASTELLAS-2021US011449

PATIENT
  Age: 43 Year
  Sex: Female

DRUGS (167)
  1. MIRABEGRON [Suspect]
     Active Substance: MIRABEGRON
     Indication: Product used for unknown indication
     Dosage: 1 DF, ONCE DAILY (EXTENDED RELEASE TABLET)
     Route: 065
  2. MIRABEGRON [Suspect]
     Active Substance: MIRABEGRON
     Dosage: 1 DF, ONCE DAILY (1 EVERY 1 DAYS)(EXTENDED RELEASE TABLET)
     Route: 065
  3. MIRABEGRON [Suspect]
     Active Substance: MIRABEGRON
     Dosage: 1 DF, ONCE DAILY (1 EVERY 1 DAYS)(EXTENDED RELEASE TABLET)
     Route: 065
  4. MIRABEGRON [Suspect]
     Active Substance: MIRABEGRON
     Dosage: 1 DF, EVERY 2 DAYS (EXTENDED RELEASE TABLET)
     Route: 065
  5. AIMOVIG [Suspect]
     Active Substance: ERENUMAB-AOOE
     Indication: Migraine
     Dosage: UNK UNK, UNKNOWN FREQ.
     Route: 065
  6. ATOMOXETINE HYDROCHLORIDE [Suspect]
     Active Substance: ATOMOXETINE HYDROCHLORIDE
     Indication: Migraine
     Dosage: 1 DF, ONCE DAILY (1 EVERY 1 DAYS)
     Route: 005
  7. ATOMOXETINE HYDROCHLORIDE [Suspect]
     Active Substance: ATOMOXETINE HYDROCHLORIDE
     Route: 005
  8. ATOMOXETINE HYDROCHLORIDE [Suspect]
     Active Substance: ATOMOXETINE HYDROCHLORIDE
     Dosage: 1 DF, ONCE DAILY (1 EVERY 1 DAYS)
     Route: 005
  9. ATOMOXETINE [Suspect]
     Active Substance: ATOMOXETINE
     Indication: Migraine
     Dosage: 1 DF, ONCE DAILY (1 EVERY 1 DAYS)
     Route: 065
  10. ATOMOXETINE [Suspect]
     Active Substance: ATOMOXETINE
     Indication: Migraine
     Dosage: 1 DF, ONCE DAILY (1 EVERY 1 DAYS)
     Route: 065
  11. FLUTICASONE FUROATE [Suspect]
     Active Substance: FLUTICASONE FUROATE
     Indication: Product used for unknown indication
     Dosage: 1 DF, ONCE DAILY (1 EVERY 1 DAYS)
     Route: 065
  12. FLUTICASONE FUROATE [Suspect]
     Active Substance: FLUTICASONE FUROATE
     Dosage: UNK UNK, UNKNOWN FREQ.
     Route: 065
  13. FLUTICASONE FUROATE [Suspect]
     Active Substance: FLUTICASONE FUROATE
     Indication: Product used for unknown indication
     Route: 065
  14. BETAMETHASONE VALERATE [Suspect]
     Active Substance: BETAMETHASONE VALERATE
     Indication: Product used for unknown indication
     Dosage: 1 DF, ONCE DAILY (1 EVERY 1 DAY)
     Route: 065
  15. BETAMETHASONE VALERATE [Suspect]
     Active Substance: BETAMETHASONE VALERATE
     Dosage: UNK UNK, UNKNOWN FREQ.
     Route: 065
  16. BETAMETHASONE VALERATE [Suspect]
     Active Substance: BETAMETHASONE VALERATE
     Dosage: 1 DF, OTHER (1 EVERY 2 DAYS)
     Route: 065
  17. BETAMETHASONE VALERATE [Suspect]
     Active Substance: BETAMETHASONE VALERATE
     Indication: Product used for unknown indication
     Dosage: 1 DF, ONCE DAILY (1 EVERY 1 DAYS, 361 DAYS)
     Route: 065
  18. BOTULINUM TOXIN TYPE A [Suspect]
     Active Substance: BOTULINUM TOXIN TYPE A
     Indication: Product used for unknown indication
     Dosage: UNK UNK, UNKNOWN FREQ. (POWDER FOR SOLUTION)
     Route: 065
  19. BUTRANS [Suspect]
     Active Substance: BUPRENORPHINE
     Indication: Product used for unknown indication
     Dosage: UNK UNK, UNKNOWN FREQ.
     Route: 065
  20. CETIRIZINE HYDROCHLORIDE\PSEUDOEPHEDRINE HYDROCHLORIDE [Suspect]
     Active Substance: CETIRIZINE HYDROCHLORIDE\PSEUDOEPHEDRINE HYDROCHLORIDE
     Indication: Product used for unknown indication
     Dosage: UNK UNK, UNKNOWN FREQ.
     Route: 065
  21. CYCLOBENZAPRINE HYDROCHLORIDE [Suspect]
     Active Substance: CYCLOBENZAPRINE HYDROCHLORIDE
     Indication: Product used for unknown indication
     Dosage: 1 DF, ONCE DAILY (1 EVERY 1 DAYS)
     Route: 065
  22. CYCLOBENZAPRINE HYDROCHLORIDE [Suspect]
     Active Substance: CYCLOBENZAPRINE HYDROCHLORIDE
     Dosage: 1 DF, EVERY 2 DAYS
     Route: 065
  23. DOMPERIDONE\RABEPRAZOLE [Suspect]
     Active Substance: DOMPERIDONE\RABEPRAZOLE
     Indication: Product used for unknown indication
     Dosage: UNK UNK, ONCE DAILY (1 EVERY 1 DAYS)
     Route: 065
  24. DOMPERIDONE\RABEPRAZOLE [Suspect]
     Active Substance: DOMPERIDONE\RABEPRAZOLE
     Route: 065
  25. DOMPERIDONE\RABEPRAZOLE [Suspect]
     Active Substance: DOMPERIDONE\RABEPRAZOLE
     Indication: Product used for unknown indication
     Dosage: 3 DF, ONCE DAILY (3 EVERY 1 DAYS)
     Route: 065
  26. DOMPERIDONE\RABEPRAZOLE [Suspect]
     Active Substance: DOMPERIDONE\RABEPRAZOLE
     Dosage: 1 DF, THRICE DAILY (3 EVERY 1 DAYS)
     Route: 065
  27. DOMPERIDONE\RABEPRAZOLE [Suspect]
     Active Substance: DOMPERIDONE\RABEPRAZOLE
     Route: 065
  28. DOMPERIDONE\RABEPRAZOLE [Suspect]
     Active Substance: DOMPERIDONE\RABEPRAZOLE
     Dosage: 1 DF, EVERY 2 DAYS
     Route: 065
  29. FETZIMA [Suspect]
     Active Substance: LEVOMILNACIPRAN HYDROCHLORIDE
     Indication: Product used for unknown indication
     Dosage: 1 DF, ONCE DAILY (1 EVERY 1 DAYS)
     Route: 065
  30. FETZIMA [Suspect]
     Active Substance: LEVOMILNACIPRAN HYDROCHLORIDE
     Dosage: 1 DF, OTHER (1 EVERY 2 DAYS)
     Route: 065
  31. FINACEA [Suspect]
     Active Substance: AZELAIC ACID
     Indication: Product used for unknown indication
     Dosage: 1 DF, ONCE DAILY (1 EVERY 1 DAYS)
     Route: 065
  32. FINACEA [Suspect]
     Active Substance: AZELAIC ACID
     Dosage: 1 DF, OTHER (1 EVERY 2 DAYS)
     Route: 065
  33. FINACEA [Suspect]
     Active Substance: AZELAIC ACID
     Indication: Product used for unknown indication
     Dosage: 1 DF, ONCE DAILY (1 EVERY 1 DAYS)
     Route: 065
  34. HYDROMORPHONE [Suspect]
     Active Substance: HYDROMORPHONE
     Indication: Product used for unknown indication
     Dosage: 1 DF, OTHER (1 EVERY 2 DAYS)
     Route: 065
  35. HYDROMORPHONE [Suspect]
     Active Substance: HYDROMORPHONE
     Dosage: 1 DF, ONCE DAILY (1 EVERY 1 DAYS)
     Route: 065
  36. HYDROMORPHONE [Suspect]
     Active Substance: HYDROMORPHONE
     Route: 065
  37. HYDROMORPHONE [Suspect]
     Active Substance: HYDROMORPHONE
     Dosage: 2 DF, TWICE DAILY (2 EVERY 1 DAYS)
     Route: 065
  38. HYDROMORPHONE [Suspect]
     Active Substance: HYDROMORPHONE
     Dosage: UNK UNK, UNKNOWN FREQ.
     Route: 065
  39. HYDROMORPHONE [Suspect]
     Active Substance: HYDROMORPHONE
     Route: 065
  40. HYDROMORPHONE [Suspect]
     Active Substance: HYDROMORPHONE
     Dosage: 1 DF, OTHER (1 EVERY 2 DAYS)
     Route: 065
  41. LAMICTAL [Suspect]
     Active Substance: LAMOTRIGINE
     Indication: Product used for unknown indication
     Dosage: 25 MG, OTHER (1 EVERY 2 DAYS)
     Route: 048
  42. LAMICTAL [Suspect]
     Active Substance: LAMOTRIGINE
     Dosage: 50 MG, OTHER (1 EVERY 2 DAYS)
     Route: 048
  43. LAMICTAL [Suspect]
     Active Substance: LAMOTRIGINE
     Route: 048
  44. LAMICTAL [Suspect]
     Active Substance: LAMOTRIGINE
     Dosage: 50 MG, ONCE DAILY (1 EVERY 1 DAYS)
     Route: 048
  45. LAMICTAL [Suspect]
     Active Substance: LAMOTRIGINE
     Dosage: 25 MG, ONCE DAILY (1 EVERY 1 DAYS)
     Route: 048
  46. LAMICTAL [Suspect]
     Active Substance: LAMOTRIGINE
     Dosage: 50 MG, TWICE DAILY (2 EVERY 1 DAYS)
     Route: 048
  47. LAMICTAL [Suspect]
     Active Substance: LAMOTRIGINE
     Dosage: 25 MG, TWICE DAILY (2 EVERY 1 DAYS)
     Route: 048
  48. LAMICTAL [Suspect]
     Active Substance: LAMOTRIGINE
     Dosage: 25 MG, OTHER (1 EVERY 2 DAYS)
     Route: 048
  49. LAMICTAL [Suspect]
     Active Substance: LAMOTRIGINE
     Indication: Product used for unknown indication
     Route: 048
  50. LAMICTAL [Suspect]
     Active Substance: LAMOTRIGINE
     Dosage: 50 MG, TWICE DAILY (2 EVERY 1 DAYS)
     Route: 048
  51. NAPROXEN [Suspect]
     Active Substance: NAPROXEN
     Indication: Product used for unknown indication
     Dosage: 2 DF, TWICE DAILY (2 EVERY 1 DAYS)
     Route: 065
  52. NAPROXEN [Suspect]
     Active Substance: NAPROXEN
     Dosage: 1 DF, TWICE DAILY (2 EVERY 1 DAYS)
     Route: 065
  53. NAPROXEN [Suspect]
     Active Substance: NAPROXEN
     Route: 065
  54. NAPROXEN [Suspect]
     Active Substance: NAPROXEN
     Dosage: 2 DF, TWICE DAILY (2 EVERY 1 DAYS)
     Route: 065
  55. NAPROXEN [Suspect]
     Active Substance: NAPROXEN
     Dosage: 1 DF, EVERY 2 DAYS
     Route: 065
  56. NAPROXEN [Suspect]
     Active Substance: NAPROXEN
     Route: 065
  57. NAPROXEN [Suspect]
     Active Substance: NAPROXEN
     Dosage: 1 DF, ONCE DAILY (2 EVERY 1 DAYS)
     Route: 065
  58. PANTOPRAZOLE SODIUM [Suspect]
     Active Substance: PANTOPRAZOLE SODIUM
     Indication: Product used for unknown indication
     Dosage: 2 DF, ONCE DAILY (1 EVERY 1 DAYS)
     Route: 065
  59. PANTOPRAZOLE SODIUM [Suspect]
     Active Substance: PANTOPRAZOLE SODIUM
     Dosage: 1 DF, TWICE DAILY (2 EVERY 1 DAYS)
     Route: 065
  60. PANTOPRAZOLE SODIUM [Suspect]
     Active Substance: PANTOPRAZOLE SODIUM
     Dosage: 1 DF, ONCE DAILY (1 EVERY 1 DAYS)
     Route: 065
  61. RANITIDINE HYDROCHLORIDE [Suspect]
     Active Substance: RANITIDINE HYDROCHLORIDE
     Indication: Product used for unknown indication
     Dosage: UNK UNK, UNKNOWN FREQ.
     Route: 065
  62. RANITIDINE HYDROCHLORIDE [Suspect]
     Active Substance: RANITIDINE HYDROCHLORIDE
     Dosage: UNK UNK, UNKNOWN FREQ.
     Route: 065
  63. RANITIDINE HYDROCHLORIDE [Suspect]
     Active Substance: RANITIDINE HYDROCHLORIDE
     Dosage: UNK UNK, UNKNOWN FREQ.
     Route: 065
  64. TOPAMAX [Suspect]
     Active Substance: TOPIRAMATE
     Indication: Product used for unknown indication
     Dosage: 25 MG, ONCE DAILY (1 EVERY 1 DAYS)
     Route: 065
  65. TOPAMAX [Suspect]
     Active Substance: TOPIRAMATE
     Dosage: UNK UNK, UNKNOWN FREQ.
     Route: 065
  66. TOPAMAX [Suspect]
     Active Substance: TOPIRAMATE
     Dosage: 25 MG, EVERY 2 DAYS
     Route: 065
  67. TOPICORT [Suspect]
     Active Substance: DESOXIMETASONE
     Indication: Product used for unknown indication
     Dosage: 2 DF, ONCE DAILY (2 EVERY 1 DAYS, 4 MONTHS)
     Route: 065
  68. TOPICORT [Suspect]
     Active Substance: DESOXIMETASONE
     Route: 065
  69. TOPICORT [Suspect]
     Active Substance: DESOXIMETASONE
     Route: 065
  70. TRAZODONE HYDROCHLORIDE [Suspect]
     Active Substance: TRAZODONE HYDROCHLORIDE
     Indication: Product used for unknown indication
     Dosage: 1 DF, ONCE DAILY (1 EVERY 1 DAYS)
     Route: 065
  71. TRAZODONE [Suspect]
     Active Substance: TRAZODONE HYDROCHLORIDE
     Indication: Product used for unknown indication
     Dosage: 1 DF, ONCE DAILY (1 EVERY 1 DAYS)
     Route: 065
  72. TRAZODONE [Suspect]
     Active Substance: TRAZODONE HYDROCHLORIDE
     Dosage: UNK UNK, UNKNOWN FREQ.
     Route: 065
  73. TRAZODONE [Suspect]
     Active Substance: TRAZODONE HYDROCHLORIDE
     Dosage: 1 DF, EVERY 2 DAYS
     Route: 065
  74. TRETINOIN [Suspect]
     Active Substance: TRETINOIN
     Indication: Product used for unknown indication
     Dosage: 1 DF, ONCE DAILY (1 EVERY 1 DAYS)
     Route: 065
  75. TRETINOIN [Suspect]
     Active Substance: TRETINOIN
     Dosage: UNK UNK, UNKNOWN FREQ.
     Route: 065
  76. TRETINOIN [Suspect]
     Active Substance: TRETINOIN
     Dosage: 1 DF, EVERY 2 DAYS
     Route: 065
  77. VITAMIN D3 [Suspect]
     Active Substance: CHOLECALCIFEROL
     Indication: Product used for unknown indication
     Dosage: UNK UNK, UNKNOWN FREQ.
     Route: 065
  78. VITAMIN D3 [Suspect]
     Active Substance: CHOLECALCIFEROL
     Dosage: UNK UNK, UNKNOWN FREQ.
     Route: 065
  79. VITAMIN C [Suspect]
     Active Substance: ASCORBIC ACID
     Indication: Product used for unknown indication
     Route: 065
  80. VITAMIN C [Suspect]
     Active Substance: ASCORBIC ACID
     Dosage: UNK UNK, UNKNOWN FREQ.
     Route: 065
  81. PHOSPHORUS [Suspect]
     Active Substance: PHOSPHORUS
     Indication: Product used for unknown indication
     Dosage: 1 DF, ONCE DAILY (1 EVERY 1 DAYS, 421 DAYS)
     Route: 065
  82. MAGNESIUM [Suspect]
     Active Substance: MAGNESIUM
     Indication: Product used for unknown indication
     Dosage: 1 DF, ONCE DAILY (1 EVERY 1 DAYS)
     Route: 065
  83. CALCIUM [Suspect]
     Active Substance: CALCIUM
     Indication: Product used for unknown indication
     Dosage: 1 DF, ONCE DAILY (1 EVERY 1 DAYS, 421 DAYS)
     Route: 065
  84. CORTISONE [Suspect]
     Active Substance: CORTISONE
     Indication: Product used for unknown indication
     Route: 065
  85. MILNACIPRAN HYDROCHLORIDE [Suspect]
     Active Substance: MILNACIPRAN HYDROCHLORIDE
     Indication: Product used for unknown indication
     Dosage: 1 DF, ONCE DAILY (1 EVERY 1 DAYS)
     Route: 065
  86. MILNACIPRAN HYDROCHLORIDE [Suspect]
     Active Substance: MILNACIPRAN HYDROCHLORIDE
     Dosage: 1 DF, OTHER (1 EVERY 2 DAYS)
     Route: 065
  87. AZELAIC ACID [Suspect]
     Active Substance: AZELAIC ACID
     Indication: Product used for unknown indication
     Dosage: UNK UNK, UNKNOWN FREQ.
     Route: 005
  88. AZELAIC ACID [Suspect]
     Active Substance: AZELAIC ACID
     Dosage: UNK UNK, TWICE DAILY (2 EVERY 1 DAY)
     Route: 065
  89. CANDESARTAN CILEXETIL [Suspect]
     Active Substance: CANDESARTAN CILEXETIL
     Indication: Migraine
     Dosage: UNK UNK, UNKNOWN FREQ.
     Route: 048
  90. CETIRIZINE HYDROCHLORIDE [Suspect]
     Active Substance: CETIRIZINE HYDROCHLORIDE
     Indication: Product used for unknown indication
     Dosage: UNK UNK, UNKNOWN FREQ.
     Route: 065
  91. CETIRIZINE HYDROCHLORIDE [Suspect]
     Active Substance: CETIRIZINE HYDROCHLORIDE
     Dosage: UNK UNK, UNKNOWN FREQ.
     Route: 065
  92. CETIRIZINE HYDROCHLORIDE [Suspect]
     Active Substance: CETIRIZINE HYDROCHLORIDE
     Indication: Product used for unknown indication
     Dosage: 3 DF, ONCE DAILY (1 EVERY 1 DAYS)
     Route: 065
  93. CETIRIZINE HYDROCHLORIDE [Suspect]
     Active Substance: CETIRIZINE HYDROCHLORIDE
     Dosage: 1 DF, ONCE DAILY (1 EVERY 1 DAYS)
     Route: 065
  94. CETIRIZINE HYDROCHLORIDE [Suspect]
     Active Substance: CETIRIZINE HYDROCHLORIDE
     Dosage: 3 DF, EVERY 2 DAYS
     Route: 065
  95. CETIRIZINE HYDROCHLORIDE [Suspect]
     Active Substance: CETIRIZINE HYDROCHLORIDE
     Dosage: UNK UNK, UNKNOWN FREQ.
     Route: 065
  96. CETIRIZINE HYDROCHLORIDE [Suspect]
     Active Substance: CETIRIZINE HYDROCHLORIDE
     Dosage: UNK UNK, UNKNOWN FREQ.
     Route: 065
  97. CETIRIZINE HYDROCHLORIDE [Suspect]
     Active Substance: CETIRIZINE HYDROCHLORIDE
     Indication: Product used for unknown indication
     Dosage: UNK UNK, UNKNOWN FREQ.
     Route: 065
  98. DESOXIMETASONE [Suspect]
     Active Substance: DESOXIMETASONE
     Indication: Product used for unknown indication
     Dosage: 1 DF, TWICE DAILY (2 EVERY 1 DAYS)
     Route: 065
  99. DESOXIMETASONE [Suspect]
     Active Substance: DESOXIMETASONE
     Dosage: 25 MG, TWICE DAILY (2 EVERY 1 DAYS)
     Route: 065
  100. DESOXIMETASONE [Suspect]
     Active Substance: DESOXIMETASONE
     Dosage: UNK UNK, UNKNOWN FREQ.
     Route: 065
  101. DESOXIMETASONE [Suspect]
     Active Substance: DESOXIMETASONE
     Dosage: 3 MG, ONCE DAILY (1 EVERY 1 DAYS)
     Route: 065
  102. DESOXIMETASONE [Suspect]
     Active Substance: DESOXIMETASONE
     Route: 065
  103. DESOXIMETASONE [Suspect]
     Active Substance: DESOXIMETASONE
     Dosage: 2 DF, ONCE DAILY (2 EVERY 1 DAYS)
     Route: 065
  104. DOMPERIDONE MALEATE [Suspect]
     Active Substance: DOMPERIDONE MALEATE
     Indication: Product used for unknown indication
     Dosage: UNK UNK, UNKNOWN FREQ.
     Route: 065
  105. HYDROMORPHONE HYDROCHLORIDE [Suspect]
     Active Substance: HYDROMORPHONE HYDROCHLORIDE
     Indication: Product used for unknown indication
     Route: 065
  106. HYDROMORPHONE HYDROCHLORIDE [Suspect]
     Active Substance: HYDROMORPHONE HYDROCHLORIDE
     Dosage: 1 DF, TWICE DAILY (2 EVERY 1 DAY)
     Route: 065
  107. HYDROMORPHONE HYDROCHLORIDE [Suspect]
     Active Substance: HYDROMORPHONE HYDROCHLORIDE
     Route: 065
  108. HYDROMORPHONE HYDROCHLORIDE [Suspect]
     Active Substance: HYDROMORPHONE HYDROCHLORIDE
     Dosage: 1 DF, OTHER (1 EVERY 2 DAYS)
     Route: 065
  109. PAROXETINE [Suspect]
     Active Substance: PAROXETINE
     Indication: Product used for unknown indication
     Dosage: UNK UNK, UNKNOWN FREQ.
     Route: 065
  110. PSEUDOEPHEDRINE HYDROCHLORIDE [Suspect]
     Active Substance: PSEUDOEPHEDRINE HYDROCHLORIDE
     Indication: Product used for unknown indication
     Dosage: UNK UNK, UNKNOWN FREQ.
     Route: 065
  111. VITAMIN D [Suspect]
     Active Substance: VITAMIN D NOS
     Indication: Product used for unknown indication
     Dosage: UNK UNK, UNKNOWN FREQ. (JAMIESON)
     Route: 065
  112. VITAMIN D3 [Suspect]
     Active Substance: CHOLECALCIFEROL
     Indication: Product used for unknown indication
     Dosage: UNK UNK, UNKNOWN FREQ.
     Route: 065
  113. VITAMIN D3 [Suspect]
     Active Substance: CHOLECALCIFEROL
     Dosage: UNK UNK, UNKNOWN FREQ.
     Route: 065
  114. CYCLOBENZAPRINE [Suspect]
     Active Substance: CYCLOBENZAPRINE
     Indication: Product used for unknown indication
     Dosage: UNK UNK, ONCE DAILY (1 EVERY 1 DAYS)
     Route: 065
  115. CYCLOBENZAPRINE [Suspect]
     Active Substance: CYCLOBENZAPRINE
     Dosage: UNK UNK, UNKNOWN FREQ.
     Route: 065
  116. ERENUMAB-AOOE [Suspect]
     Active Substance: ERENUMAB-AOOE
     Indication: Migraine
     Dosage: UNK UNK, UNKNOWN FREQ.
     Route: 065
  117. ERENUMAB-AOOE [Suspect]
     Active Substance: ERENUMAB-AOOE
     Dosage: UNK UNK, UNKNOWN FREQ.
     Route: 065
  118. PANTOPRAZOLE [Suspect]
     Active Substance: PANTOPRAZOLE
     Indication: Product used for unknown indication
     Route: 065
  119. PANTOPRAZOLE [Suspect]
     Active Substance: PANTOPRAZOLE
     Route: 065
  120. PANTOPRAZOLE [Suspect]
     Active Substance: PANTOPRAZOLE
     Dosage: UNK UNK, UNKNOWN FREQ.
     Route: 065
  121. TOPIRAMATE [Suspect]
     Active Substance: TOPIRAMATE
     Indication: Migraine
     Dosage: 25 MG, ONCE DAILY (1 EVERY 1 DAYS)
     Route: 065
  122. TOPIRAMATE [Suspect]
     Active Substance: TOPIRAMATE
     Dosage: UNK UNK, UNKNOWN FREQ.
     Route: 065
  123. TOPIRAMATE [Suspect]
     Active Substance: TOPIRAMATE
     Dosage: 25 MG, ONCE DAILY  (1 EVERY 1 DAYS)
     Route: 065
  124. TOPIRAMATE [Suspect]
     Active Substance: TOPIRAMATE
     Dosage: 25 MG, ONCE DAILY (1 EVERY 1 DAYS)
     Route: 065
  125. TOPIRAMATE [Suspect]
     Active Substance: TOPIRAMATE
     Dosage: 25 MG, TWICE DAILY (1 EVERY 2 DAYS)
     Route: 065
  126. TOPIRAMATE [Suspect]
     Active Substance: TOPIRAMATE
     Dosage: 25 MG, TWICE DAILY (1 EVERY 2 DAYS)
     Route: 065
  127. STRATTERA [Suspect]
     Active Substance: ATOMOXETINE HYDROCHLORIDE
     Indication: Migraine
     Dosage: UNK UNK, ONCE DAILY (1 EVERY 1 DAYS)
     Route: 065
  128. STRATTERA [Suspect]
     Active Substance: ATOMOXETINE HYDROCHLORIDE
     Dosage: UNK UNK, UNKNOWN FREQ.
     Route: 065
  129. CALCIUM [Suspect]
     Active Substance: CALCIUM
     Indication: Product used for unknown indication
     Dosage: UNK UNK, UNKNOWN FREQ.
     Route: 065
  130. MAGNESIUM [Suspect]
     Active Substance: MAGNESIUM
     Indication: Product used for unknown indication
     Dosage: UNK UNK, UNKNOWN FREQ.
     Route: 065
  131. PHOSPHORUS [Suspect]
     Active Substance: PHOSPHORUS
     Indication: Product used for unknown indication
     Dosage: UNK UNK, UNKNOWN FREQ.
     Route: 065
  132. BUPRENORPHINE [Suspect]
     Active Substance: BUPRENORPHINE
     Indication: Product used for unknown indication
     Dosage: UNK UNK, UNKNOWN FREQ.
     Route: 065
  133. DESOXIMETASONE [Suspect]
     Active Substance: DESOXIMETASONE
     Indication: Product used for unknown indication
     Dosage: 1 DF, TWICE DAILY (2 EVERY 1 DAYS)
     Route: 065
  134. FLUTICASONE FUROATE [Suspect]
     Active Substance: FLUTICASONE FUROATE
     Indication: Product used for unknown indication
     Dosage: 1 DF, ONCE DAILY (1 EVERY 1 DAYS)
     Route: 065
  135. LAMOTRIGINE [Suspect]
     Active Substance: LAMOTRIGINE
     Indication: Product used for unknown indication
     Dosage: 25 MG, TWICE DAILY (2 EVERY 1 DAYS)
     Route: 048
  136. PANTOPRAZOLE SODIUM [Suspect]
     Active Substance: PANTOPRAZOLE SODIUM
     Indication: Product used for unknown indication
     Route: 065
  137. CETIRIZINE HYDROCHLORIDE [Suspect]
     Active Substance: CETIRIZINE HYDROCHLORIDE
     Indication: Product used for unknown indication
     Dosage: UNK UNK, UNKNOWN FREQ.
     Route: 065
  138. CETIRIZINE HYDROCHLORIDE\PSEUDOEPHEDRINE HYDROCHLORIDE [Suspect]
     Active Substance: CETIRIZINE HYDROCHLORIDE\PSEUDOEPHEDRINE HYDROCHLORIDE
     Indication: Product used for unknown indication
     Dosage: UNK UNK, UNKNOWN FREQ.
     Route: 065
  139. ERENUMAB [Suspect]
     Active Substance: ERENUMAB
     Indication: Migraine
     Dosage: UNK UNK, UNKNOWN FREQ.
     Route: 065
  140. ACETAMINOPHEN [Suspect]
     Active Substance: ACETAMINOPHEN
     Indication: Product used for unknown indication
     Dosage: UNK UNK, UNKNOWN FREQ.
     Route: 065
  141. CALCIUM GLUCONATE [Suspect]
     Active Substance: CALCIUM GLUCONATE
     Indication: Product used for unknown indication
     Dosage: UNK UNK, UNKNOWN FREQ.
     Route: 065
  142. CALCIUM PANTOTHENATE [Suspect]
     Active Substance: CALCIUM PANTOTHENATE
     Indication: Product used for unknown indication
     Route: 065
  143. CANDESARTAN [Suspect]
     Active Substance: CANDESARTAN
     Indication: Migraine
     Dosage: UNK UNK, UNKNOWN FREQ.
     Route: 048
  144. ERGOCALCIFEROL [Suspect]
     Active Substance: ERGOCALCIFEROL
     Indication: Product used for unknown indication
     Dosage: UNK UNK, UNKNOWN FREQ.
     Route: 065
  145. HYDROCORTISONE ACETATE [Suspect]
     Active Substance: HYDROCORTISONE ACETATE
     Indication: Product used for unknown indication
     Dosage: UNK UNK, TWICE DAILY (2 EVERY 1 DAYS)
     Route: 065
  146. PAROXETINE HYDROCHLORIDE [Suspect]
     Active Substance: PAROXETINE HYDROCHLORIDE
     Indication: Product used for unknown indication
     Dosage: UNK UNK, UNKNOWN FREQ.
     Route: 065
  147. RANITIDINE [Suspect]
     Active Substance: RANITIDINE
     Indication: Product used for unknown indication
     Dosage: UNK UNK, UNKNOWN FREQ.
     Route: 065
  148. ATOMOXETINE HYDROCHLORIDE [Suspect]
     Active Substance: ATOMOXETINE HYDROCHLORIDE
     Indication: Migraine
     Dosage: 1 DF, ONCE DAILY (1 EVERY 1 DAYS)
     Route: 065
  149. ATOMOXETINE HYDROCHLORIDE [Suspect]
     Active Substance: ATOMOXETINE HYDROCHLORIDE
     Dosage: 1 DF, OTHER (1 EVERY 2 DAYS)
     Route: 065
  150. CALCIUM PANTOTHENATE [Suspect]
     Active Substance: CALCIUM PANTOTHENATE
     Indication: Product used for unknown indication
     Route: 065
  151. DESOXIMETASONE [Suspect]
     Active Substance: DESOXIMETASONE
     Indication: Product used for unknown indication
     Dosage: 25 MG, TWICE DAILY (2 EVERY 1 DAYS)
     Route: 065
  152. DESOXIMETASONE [Suspect]
     Active Substance: DESOXIMETASONE
     Dosage: 25 MG, TWICE DAILY (2 EVERY 1 DAYS)
     Route: 065
  153. DOMPERIDONE [Suspect]
     Active Substance: DOMPERIDONE
     Indication: Product used for unknown indication
     Dosage: UNK UNK, UNKNOWN FREQ.
     Route: 065
  154. NAPROXEN [Suspect]
     Active Substance: NAPROXEN
     Indication: Product used for unknown indication
     Dosage: 1 DF, ONCE DAILY (1 EVERY 1 DAYS)
     Route: 065
  155. NAPROXEN [Suspect]
     Active Substance: NAPROXEN
     Dosage: 1 DF, ONCE DAILY (1 EVERY 1 DAYS)
     Route: 065
  156. NAPROXEN [Suspect]
     Active Substance: NAPROXEN
     Dosage: 1 DF, TWICE DAILY (2 EVERY 1 DAYS)
     Route: 065
  157. NAPROXEN [Suspect]
     Active Substance: NAPROXEN
     Dosage: 2 DF, TWICE DAILY (2 EVERY 1 DAYS)
     Route: 065
  158. NAPROXEN [Suspect]
     Active Substance: NAPROXEN
     Dosage: 2 DF, OTHER (1 EVERY 2 DAYS)
     Route: 065
  159. NAPROXEN [Suspect]
     Active Substance: NAPROXEN
     Route: 065
  160. PAROXETINE [Suspect]
     Active Substance: PAROXETINE
     Indication: Product used for unknown indication
     Dosage: UNK UNK, UNKNOWN FREQ.
     Route: 065
  161. CETIRIZINE HYDROCHLORIDE\PSEUDOEPHEDRINE HYDROCHLORIDE [Suspect]
     Active Substance: CETIRIZINE HYDROCHLORIDE\PSEUDOEPHEDRINE HYDROCHLORIDE
     Indication: Product used for unknown indication
     Dosage: UNK UNK, UNKNOWN FREQ.
     Route: 065
  162. HYDROCORTISONE [Suspect]
     Active Substance: HYDROCORTISONE
     Indication: Product used for unknown indication
     Dosage: UNK UNK, UNKNOWN FREQ.
     Route: 065
  163. PANTOPRAZOLE [Suspect]
     Active Substance: PANTOPRAZOLE
     Indication: Product used for unknown indication
     Dosage: 2 DF, ONCE DAILY (1 EVERY 1 DAYS)
     Route: 065
  164. PANTOPRAZOLE [Suspect]
     Active Substance: PANTOPRAZOLE
     Dosage: 1 DF, OTHER (1 EVERY 2 DAYS)
     Route: 065
  165. PANTOPRAZOLE [Suspect]
     Active Substance: PANTOPRAZOLE
     Dosage: 2 DF, TWICE DAILY (2 EVERY 1 DAYS)
     Route: 065
  166. PANTOPRAZOLE [Suspect]
     Active Substance: PANTOPRAZOLE
     Dosage: UNK UNK, UNKNOWN FREQ.
     Route: 065
  167. ATOMOXETINE HYDROCHLORIDE [Suspect]
     Active Substance: ATOMOXETINE HYDROCHLORIDE
     Indication: Migraine
     Dosage: 1 DF, EVERY 2 DAYS
     Route: 065

REACTIONS (14)
  - Epilepsy [Unknown]
  - Abdominal pain upper [Unknown]
  - Blepharospasm [Unknown]
  - Drug intolerance [Unknown]
  - Gastrooesophageal reflux disease [Unknown]
  - Hypoaesthesia [Unknown]
  - Memory impairment [Unknown]
  - Migraine [Unknown]
  - Pain [Unknown]
  - Paraesthesia [Unknown]
  - Vomiting [Unknown]
  - Taste disorder [Unknown]
  - Drug ineffective [Unknown]
  - Off label use [Unknown]
